FAERS Safety Report 4534433-X (Version None)
Quarter: 2004Q4

REPORT INFORMATION
  Report Type: 
  Country: None (occurrence: None)
  Receive Date: 20041221
  Receipt Date: 20041221
  Transmission Date: 20050328
  Serious: Yes (Other)
  Sender: FDA-Public Use
  Company Number: None

PATIENT
  Sex: Female

DRUGS (1)
  1. SEROQUEL [Suspect]
     Dosage: 25 MG PO BID
     Route: 048
     Dates: start: 20041203, end: 20041207

REACTIONS (3)
  - DYSARTHRIA [None]
  - FACIAL PALSY [None]
  - TONGUE DISORDER [None]
